APPROVED DRUG PRODUCT: RETIN-A MICRO
Active Ingredient: TRETINOIN
Strength: 0.1%
Dosage Form/Route: GEL;TOPICAL
Application: N020475 | Product #001
Applicant: BAUSCH HEALTH US LLC
Approved: Feb 7, 1997 | RLD: Yes | RS: Yes | Type: RX